FAERS Safety Report 17493727 (Version 1)
Quarter: 2020Q1

REPORT INFORMATION
  Report Type: Spontaneous
  Country: DE (occurrence: JP)
  Receive Date: 20200304
  Receipt Date: 20200304
  Transmission Date: 20200409
  Serious: Yes (Other)
  Sender: FDA-Public Use
  Company Number: JP-ELI_LILLY_AND_COMPANY-JP202002014161

PATIENT
  Age: 71 Year
  Sex: Male
  Weight: 51 kg

DRUGS (3)
  1. ERBITUX [Suspect]
     Active Substance: CETUXIMAB
     Indication: LARYNGEAL CANCER
     Dosage: UNK UNK, UNKNOWN
     Route: 041
  2. 5 FU [Concomitant]
     Active Substance: FLUOROURACIL
     Indication: LARYNGEAL CANCER
     Dosage: UNK UNK, UNKNOWN
     Route: 065
  3. CDDP [Concomitant]
     Active Substance: CISPLATIN
     Indication: LARYNGEAL CANCER
     Dosage: UNK, UNKNOWN
     Route: 065

REACTIONS (1)
  - Bacteraemia [Unknown]
